FAERS Safety Report 4997428-8 (Version None)
Quarter: 2006Q2

REPORT INFORMATION
  Report Type: 
  Country: None (occurrence: None)
  Receive Date: 20060509
  Receipt Date: 20060126
  Transmission Date: 20061013
  Serious: Yes (Hospitalization, Disabling)
  Sender: FDA-Public Use
  Company Number: US-MERCK-0601USA03576

PATIENT
  Age: 60 Year
  Sex: Female
  Weight: 64 kg

DRUGS (11)
  1. VIOXX [Suspect]
     Indication: OSTEOARTHRITIS
     Route: 048
     Dates: start: 20021004, end: 20041003
  2. DETROL [Concomitant]
     Route: 065
  3. PREMARIN [Concomitant]
     Indication: HORMONE REPLACEMENT THERAPY
     Route: 065
  4. DITROPAN [Concomitant]
     Route: 065
  5. TYLENOL (CAPLET) [Concomitant]
     Indication: PAIN
     Route: 065
     Dates: start: 19950101
  6. SULFAMETHIZOLE [Concomitant]
     Route: 065
  7. CEPHALEXIN [Concomitant]
     Route: 065
  8. IMIPRAMINE HYDROCHLORIDE [Concomitant]
     Route: 065
  9. TRIMOX [Concomitant]
     Route: 065
  10. ADVIL [Concomitant]
     Indication: PAIN
     Route: 065
     Dates: start: 20010101
  11. [THERAPY UNSPECIFIED] [Concomitant]
     Route: 065

REACTIONS (20)
  - ARTERIOSCLEROSIS [None]
  - BACTERIAL INFECTION [None]
  - CARPAL TUNNEL SYNDROME [None]
  - CEREBRAL ATROPHY [None]
  - CEREBRAL INFARCTION [None]
  - CEREBRAL VENTRICLE DILATATION [None]
  - CEREBROVASCULAR ACCIDENT [None]
  - HYPERSENSITIVITY [None]
  - HYPERTONIC BLADDER [None]
  - MIXED INCONTINENCE [None]
  - OSTEOARTHRITIS [None]
  - PHARYNGEAL OEDEMA [None]
  - SLEEP DISORDER [None]
  - STRESS [None]
  - SYNCOPE [None]
  - TOOTH INFECTION [None]
  - TRANSIENT ISCHAEMIC ATTACK [None]
  - URINARY INCONTINENCE [None]
  - URINARY TRACT INFECTION [None]
  - VASCULAR DEMENTIA [None]
